FAERS Safety Report 8183479-1 (Version None)
Quarter: 2012Q1

REPORT INFORMATION
  Report Type: 
  Country: None (occurrence: None)
  Receive Date: 20120130
  Receipt Date: 20110725
  Transmission Date: 20120608
  Serious: Yes (Hospitalization)
  Sender: FDA-Public Use
  Company Number: 038383

PATIENT
  Sex: Male

DRUGS (3)
  1. KEPPRA [Suspect]
     Indication: COMPLEX PARTIAL SEIZURES
     Dosage: 1000 MG BID TRANSPLACENTAL
     Route: 064
     Dates: start: 20090101, end: 20100506
  2. EFFEXOR [Concomitant]
  3. MULTI-VITAMINS [Concomitant]

REACTIONS (1)
  - BRONCHITIS [None]
